FAERS Safety Report 9238213 (Version 1)
Quarter: 2013Q2

REPORT INFORMATION
  Report Type: Spontaneous
  Country: PL (occurrence: None)
  Receive Date: 20130416
  Receipt Date: 20130416
  Transmission Date: 20140414
  Serious: Yes (Death, Hospitalization)
  Sender: FDA-Public Use
  Company Number: 147493

PATIENT
  Age: 33 Year
  Sex: Female

DRUGS (1)
  1. CISPLATIN [Suspect]
     Indication: LYMPHOMA
     Dosage: 100 MG/M2
     Route: 042

REACTIONS (18)
  - Overdose [None]
  - Sepsis [None]
  - Multi-organ failure [None]
  - Back pain [None]
  - Vomiting [None]
  - Hepatic failure [None]
  - Renal failure [None]
  - Dialysis [None]
  - Bone marrow failure [None]
  - Bacterial test positive [None]
  - Deafness [None]
  - Circulatory collapse [None]
  - Cardiomyopathy [None]
  - Toxicity to various agents [None]
  - Arrhythmia [None]
  - Loss of consciousness [None]
  - Cardiac arrest [None]
  - Haemorrhagic diathesis [None]
